FAERS Safety Report 9975678 (Version 1)
Quarter: 2014Q1

REPORT INFORMATION
  Report Type: Report from Study
  Country: US (occurrence: US)
  Receive Date: 20140306
  Receipt Date: 20140306
  Transmission Date: 20141002
  Serious: No
  Sender: FDA-Public Use
  Company Number: US-ABBVIE-13P-163-1160437-00

PATIENT
  Age: 60 Year
  Sex: Female

DRUGS (25)
  1. HUMIRA [Suspect]
     Indication: RHEUMATOID ARTHRITIS
  2. HUMIRA [Suspect]
     Dates: start: 201305
  3. LOSARTAN/HCTZ GT [Concomitant]
     Indication: HYPERTENSION
     Dosage: 100-12.5 MG 1 TAB DAILY
  4. NIASPAN ER [Concomitant]
     Indication: BLOOD CHOLESTEROL INCREASED
  5. TRICOR [Concomitant]
     Indication: BLOOD CHOLESTEROL INCREASED
     Dosage: AT BEDTIME
  6. TRICOR [Concomitant]
     Indication: BLOOD TRIGLYCERIDES INCREASED
  7. METOFORMIN [Concomitant]
     Indication: DIABETES MELLITUS
  8. GABAPENTIN [Concomitant]
     Dosage: AT BEDTIME
  9. SEROQUEL [Concomitant]
     Indication: INSOMNIA
     Dosage: AT BEDTIME
  10. SEROQUEL [Concomitant]
     Indication: DEPRESSION
  11. PRISTIQ [Concomitant]
     Indication: DEPRESSION
     Dosage: IN MORNING
  12. LIOTHYRONINE [Concomitant]
     Indication: HYPOTHYROIDISM
     Dosage: 2 TABS IN MORNING
  13. LIOTHYRONINE [Concomitant]
     Indication: DEPRESSION
  14. LORAZEPAM [Concomitant]
     Indication: ANXIETY
  15. METHOTREXATE [Concomitant]
     Indication: IRITIS
     Dosage: EVERY FRIDAY
  16. METHOTREXATE [Concomitant]
     Indication: RHEUMATOID ARTHRITIS
  17. FOLIC ACID [Concomitant]
     Indication: PRODUCT USED FOR UNKNOWN INDICATION
     Dosage: IN MORNING
  18. VITAMIN D3 [Concomitant]
     Indication: VITAMIN D DECREASED
     Dosage: AT BEDTIME
  19. ASPIRIN [Concomitant]
     Indication: CARDIAC DISORDER
  20. TRAVATAN [Concomitant]
     Indication: GLAUCOMA
     Dosage: 0.004% 1 DROP EACH EYE AT BEDTIME
  21. AZOPT [Concomitant]
     Indication: GLAUCOMA
     Dosage: 1% DROP EACH EYE
  22. COMBIGAN [Concomitant]
     Dosage: 0.2%-0.5% 1 DROP EACH EYE
  23. PREDNISOLONE ACETATE [Concomitant]
     Indication: IRITIS
     Dosage: 1% DROP EACH EYE
  24. NITROSTAT [Concomitant]
     Indication: CHEST PAIN
  25. OMEGA 3 [Concomitant]

REACTIONS (4)
  - Iritis [Not Recovered/Not Resolved]
  - Arthralgia [Not Recovered/Not Resolved]
  - Synovial cyst [Not Recovered/Not Resolved]
  - Arthropathy [Unknown]
